FAERS Safety Report 6134212-6 (Version None)
Quarter: 2009Q1

REPORT INFORMATION
  Report Type: 
  Country: None (occurrence: None)
  Receive Date: 20090325
  Receipt Date: 20090308
  Transmission Date: 20090719
  Serious: Yes (Hospitalization, Other)
  Sender: FDA-Public Use
  Company Number: 2005S1000682

PATIENT
  Age: 69 Year
  Sex: Male
  Weight: 74.8435 kg

DRUGS (6)
  1. PHOSPHOSODA GINGER LEMON [Suspect]
     Indication: COLONOSCOPY
     Dosage: 90 ML; TOTAL; PO
     Route: 048
     Dates: start: 20030101, end: 20030102
  2. COZAAR [Concomitant]
  3. PRAVACHOL [Concomitant]
  4. FOLIC ACID [Concomitant]
  5. FLOMAX [Concomitant]
  6. FOSAMAX [Concomitant]

REACTIONS (11)
  - DIALYSIS [None]
  - DIARRHOEA [None]
  - DRUG INEFFECTIVE [None]
  - DYSGEUSIA [None]
  - HYPERPHOSPHATAEMIA [None]
  - KIDNEY FIBROSIS [None]
  - NEPHROCALCINOSIS [None]
  - RENAL FAILURE [None]
  - RENAL FAILURE ACUTE [None]
  - RENAL TRANSPLANT [None]
  - RENAL TUBULAR NECROSIS [None]
